FAERS Safety Report 6409476-1 (Version None)
Quarter: 2009Q4

REPORT INFORMATION
  Report Type: 
  Country: None (occurrence: None)
  Receive Date: 20091016
  Receipt Date: 20090930
  Transmission Date: 20100525
  Serious: Yes (Hospitalization, Other)
  Sender: FDA-Public Use
  Company Number: APP200900639

PATIENT
  Age: 44 Year
  Sex: Female
  Weight: 47.6 kg

DRUGS (5)
  1. DEXAMETHASONE SODIUM PHOSPHATE [Suspect]
     Indication: PREMEDICATION
     Dosage: 2 MG, PIGGYBACK, INTRAVENOUS
     Route: 042
     Dates: start: 20090801, end: 20090801
  2. VENOFER [Suspect]
     Indication: DRUG USE FOR UNKNOWN INDICATION
     Dates: start: 20090801
  3. PRILOSEC [Concomitant]
  4. ALPRAZOLAM [Concomitant]
  5. TRAZODONE HCL [Concomitant]

REACTIONS (17)
  - AGITATION [None]
  - CONFUSIONAL STATE [None]
  - DECREASED APPETITE [None]
  - DIARRHOEA [None]
  - DISORIENTATION [None]
  - DIZZINESS [None]
  - DRY MOUTH [None]
  - HYPOKALAEMIA [None]
  - HYPOTENSION [None]
  - INSOMNIA [None]
  - LOGORRHOEA [None]
  - NAUSEA [None]
  - NERVOUSNESS [None]
  - STEROID WITHDRAWAL SYNDROME [None]
  - VISION BLURRED [None]
  - VOMITING [None]
  - WEIGHT DECREASED [None]
